FAERS Safety Report 5080792-1 (Version None)
Quarter: 2006Q3

REPORT INFORMATION
  Report Type: 
  Country: None (occurrence: None)
  Receive Date: 20060810
  Receipt Date: 20060801
  Transmission Date: 20061208
  Serious: Yes (Other)
  Sender: FDA-Public Use
  Company Number: 028-20785-05070427

PATIENT
  Age: 58 Year
  Sex: Male

DRUGS (1)
  1. THALOMID [Suspect]
     Indication: MULTIPLE MYELOMA
     Dosage: 2 IN 1 D, ORAL
     Route: 048

REACTIONS (9)
  - BLADDER DISORDER [None]
  - DYSTONIA [None]
  - HYPOAESTHESIA [None]
  - NEUROPATHY PERIPHERAL [None]
  - RETINAL DETACHMENT [None]
  - TRANSPLANT [None]
  - URINARY HESITATION [None]
  - URINARY RETENTION [None]
  - URINARY TRACT INFECTION [None]
